FAERS Safety Report 10025920 (Version 3)
Quarter: 2014Q2

REPORT INFORMATION
  Report Type: Report from Study
  Country: US (occurrence: US)
  Receive Date: 20140320
  Receipt Date: 20140411
  Transmission Date: 20141212
  Serious: Yes (Death, Life-Threatening, Hospitalization, Disabling, Other)
  Sender: FDA-Public Use
  Company Number: US-ACTELION-A-US2014-96215

PATIENT
  Age: 28 Year
  Sex: Female
  Weight: 82.86 kg

DRUGS (6)
  1. VELETRI [Suspect]
     Indication: PULMONARY ARTERIAL HYPERTENSION
     Dosage: 15 NG/KG, PER MIN
     Route: 042
     Dates: start: 20131129, end: 20140314
  2. LISINOPRIL [Concomitant]
     Dosage: 2.5 MG, UNK
  3. ZONISAMIDE [Concomitant]
     Dosage: 300 MG, QPM
  4. FOLVITE [Concomitant]
  5. PRENATAL VITAMINS [Concomitant]
  6. CELEXA [Concomitant]
     Dosage: 20 MG, UNK

REACTIONS (7)
  - Pulseless electrical activity [Fatal]
  - Pregnancy [Unknown]
  - Caesarean section [Unknown]
  - Abdominal pain [Unknown]
  - Uterine hypertonus [Unknown]
  - Coma [Unknown]
  - Anuria [Unknown]
